FAERS Safety Report 9574678 (Version 1)
Quarter: 2013Q4

REPORT INFORMATION
  Report Type: Spontaneous
  Country: FR (occurrence: FR)
  Receive Date: 20131001
  Receipt Date: 20131001
  Transmission Date: 20140711
  Serious: Yes (Other)
  Sender: FDA-Public Use
  Company Number: FR-ROCHE-1282349

PATIENT
  Age: 56 Year
  Sex: Female

DRUGS (6)
  1. ROACTEMRA [Suspect]
     Indication: SPONDYLOARTHROPATHY
     Dosage: LAST DOSE 25/JUL/2013
     Route: 041
     Dates: start: 201203
  2. ATARAX (FRANCE) [Concomitant]
  3. IXPRIM [Concomitant]
  4. GAVISCON (FRANCE) [Concomitant]
  5. MOPRAL (FRANCE) [Concomitant]
  6. CORTANCYL [Concomitant]

REACTIONS (1)
  - Drug eruption [Recovering/Resolving]
